FAERS Safety Report 20363505 (Version 1)
Quarter: 2022Q1

REPORT INFORMATION
  Report Type: Spontaneous
  Country: US (occurrence: None)
  Receive Date: 20220121
  Receipt Date: 20220121
  Transmission Date: 20220423
  Serious: Yes (Hospitalization)
  Sender: FDA-Public Use
  Company Number: None

PATIENT
  Age: 64 Year
  Sex: Male
  Weight: 105.8 kg

DRUGS (4)
  1. TOCILIZUMAB [Suspect]
     Active Substance: TOCILIZUMAB
     Indication: COVID-19
     Dosage: OTHER FREQUENCY : ONCE;?
     Route: 042
     Dates: start: 20211230, end: 20211230
  2. LEVOFLOXACIN [Concomitant]
     Active Substance: LEVOFLOXACIN
  3. DEXAMETHASONE [Concomitant]
     Active Substance: DEXAMETHASONE
     Dates: start: 20211230, end: 20220109
  4. REMDESIVIR [Concomitant]
     Active Substance: REMDESIVIR
     Dates: start: 20211230, end: 20220103

REACTIONS (10)
  - Oxygen saturation decreased [None]
  - White blood cell count increased [None]
  - Hypotension [None]
  - Pyrexia [None]
  - Hyperphosphataemia [None]
  - Atrial fibrillation [None]
  - Gastrointestinal haemorrhage [None]
  - Tachycardia [None]
  - Cardio-respiratory arrest [None]
  - Hypothermia [None]

NARRATIVE: CASE EVENT DATE: 20220116
